FAERS Safety Report 15669419 (Version 3)
Quarter: 2022Q3

REPORT INFORMATION
  Report Type: Spontaneous
  Country: GB (occurrence: GB)
  Receive Date: 20181129
  Receipt Date: 20220712
  Transmission Date: 20221027
  Serious: Yes (Death, Other)
  Sender: FDA-Public Use
  Company Number: GB-DENTSPLY-2018SCDP000516

PATIENT
  Age: 28 Year
  Sex: Female

DRUGS (6)
  1. XYLOCAINE [Suspect]
     Active Substance: LIDOCAINE HYDROCHLORIDE
     Indication: Ulcer
     Dosage: 10% XYLOCAINE OROMUCOSAL SPRAY SOLUTION (SPRAYING HER SELF IN THE MOUTH ALL THE TIME, CREAMS IN THE
     Route: 065
  2. XYLOCAINE [Suspect]
     Active Substance: LIDOCAINE HYDROCHLORIDE
     Indication: Oral pain
  3. XYLOCAINE [Suspect]
     Active Substance: LIDOCAINE HYDROCHLORIDE
     Indication: Groin pain
  4. LIDOCAINE\PRILOCAINE [Suspect]
     Active Substance: LIDOCAINE\PRILOCAINE
     Indication: Ulcer
     Dosage: UNK CREAM
     Route: 065
  5. LIDOCAINE\PRILOCAINE [Suspect]
     Active Substance: LIDOCAINE\PRILOCAINE
     Indication: Oral pain
  6. LIDOCAINE\PRILOCAINE [Suspect]
     Active Substance: LIDOCAINE\PRILOCAINE
     Indication: Groin pain

REACTIONS (13)
  - Death [Fatal]
  - Product administration error [Fatal]
  - Product prescribing error [Fatal]
  - Overdose [Fatal]
  - Anosognosia [Unknown]
  - Skin discolouration [Unknown]
  - Adverse event [Unknown]
  - Hallucination [Unknown]
  - Decreased appetite [Unknown]
  - Pyrexia [Unknown]
  - Nightmare [Unknown]
  - Confusional state [Unknown]
  - Toxicity to various agents [Unknown]
